FAERS Safety Report 9183004 (Version 1)
Quarter: 2012Q4

REPORT INFORMATION
  Report Type: 
  Country: US (occurrence: US)
  Receive Date: 20121030
  Receipt Date: 20121030
  Transmission Date: 20130627
  Serious: No
  Sender: FDA-Public Use
  Company Number: US-BIOGENIDEC-2012BI047417

PATIENT
  Age: 46 None
  Sex: Male

DRUGS (2)
  1. AVONEX [Suspect]
     Indication: MULTIPLE SCLEROSIS
     Route: 030
     Dates: start: 20071218
  2. ANTIBIOTICS [Concomitant]

REACTIONS (2)
  - Tooth abscess [Not Recovered/Not Resolved]
  - Influenza like illness [Recovered/Resolved]
